FAERS Safety Report 12112427 (Version 7)
Quarter: 2017Q2

REPORT INFORMATION
  Report Type: Spontaneous
  Country: US (occurrence: US)
  Receive Date: 20160225
  Receipt Date: 20170419
  Transmission Date: 20170829
  Serious: Yes (Other)
  Sender: FDA-Public Use
  Company Number: US-ROCHE-1715845

PATIENT
  Age: 30 Year
  Sex: Female

DRUGS (1)
  1. TAMIFLU [Suspect]
     Active Substance: OSELTAMIVIR PHOSPHATE
     Indication: PRODUCT USED FOR UNKNOWN INDICATION
     Dosage: 2X A DAY FOR 5 DAYS
     Route: 048
     Dates: start: 20160220

REACTIONS (7)
  - Headache [Recovered/Resolved]
  - Erythema [Unknown]
  - Ocular hyperaemia [Unknown]
  - Rash [Unknown]
  - Screaming [Recovered/Resolved]
  - Eye swelling [Recovered/Resolved]
  - Erythema [Unknown]

NARRATIVE: CASE EVENT DATE: 20160220
